FAERS Safety Report 5812477-5 (Version None)
Quarter: 2008Q3

REPORT INFORMATION
  Report Type: 
  Country: None (occurrence: None)
  Receive Date: 20080716
  Receipt Date: 20080716
  Transmission Date: 20090109
  Serious: Yes (Other)
  Sender: FDA-Public Use
  Company Number: None

PATIENT
  Age: 31 Year
  Sex: Female
  Weight: 52.5265 kg

DRUGS (1)
  1. COMPAZINE [Suspect]
     Dosage: COMPAZINE 5MG IV Q 4 PRN THEN COMP. 5 PO Q6PRN
     Route: 042
     Dates: start: 20080426

REACTIONS (5)
  - MUSCLE SPASMS [None]
  - MUSCLE TWITCHING [None]
  - NECK PAIN [None]
  - TIC [None]
  - TRISMUS [None]
